FAERS Safety Report 4918063-3 (Version None)
Quarter: 2006Q1

REPORT INFORMATION
  Report Type: 
  Country: None (occurrence: None)
  Receive Date: 20060215
  Receipt Date: 20060203
  Transmission Date: 20060701
  Serious: Yes (Other)
  Sender: FDA-Public Use
  Company Number: 2006BH002625

PATIENT

DRUGS (2)
  1. VINORELBINE TARTRATE [Suspect]
     Indication: BREAST CANCER METASTATIC
     Dosage: 25 MG/M**2
  2. GEMCITABINE (GEMCITABINE) [Concomitant]
     Indication: BREAST CANCER METASTATIC
     Dosage: 350 MG/**2

REACTIONS (1)
  - ILEUS PARALYTIC [None]
